FAERS Safety Report 4409841-8 (Version None)
Quarter: 2004Q3

REPORT INFORMATION
  Report Type: 
  Country: None (occurrence: None)
  Receive Date: 20040726
  Receipt Date: 20040714
  Transmission Date: 20050211
  Serious: Yes (Other)
  Sender: FDA-Public Use
  Company Number: DE-JNJFOC-20040606442

PATIENT
  Age: 44 Year
  Sex: Female

DRUGS (7)
  1. REMICADE [Suspect]
     Indication: ANKYLOSING SPONDYLITIS
     Dosage: 400 MG, INTRAVENOUS
     Route: 042
     Dates: start: 20040401
  2. METHOTEXATE (METHOTREXATE) [Concomitant]
  3. IBUPROFEN [Concomitant]
  4. FOKALEPSIN (CARBAMAZEPINE) [Concomitant]
  5. PREDNISOLONE [Concomitant]
  6. MORPHINE [Concomitant]
  7. INSULIN [Concomitant]

REACTIONS (1)
  - TREMOR [None]
